FAERS Safety Report 11835141 (Version 2)
Quarter: 2016Q1

REPORT INFORMATION
  Report Type: Spontaneous
  Country: US (occurrence: US)
  Receive Date: 20151215
  Receipt Date: 20160128
  Transmission Date: 20160525
  Serious: Yes (Hospitalization)
  Sender: FDA-Public Use
  Company Number: US-009507513-1512USA005827

PATIENT
  Age: 30 Year
  Sex: Female
  Weight: 66.67 kg

DRUGS (1)
  1. NUVARING [Suspect]
     Active Substance: ETHINYL ESTRADIOL\ETONOGESTREL
     Indication: CONTRACEPTION
     Dosage: 1 DF, UNK
     Route: 067
     Dates: start: 201506, end: 20151209

REACTIONS (6)
  - Hypercoagulation [Unknown]
  - Embolism [Unknown]
  - Electrocardiogram low voltage [Unknown]
  - Transient ischaemic attack [Recovered/Resolved]
  - Type V hyperlipidaemia [Unknown]
  - Paraesthesia [Unknown]

NARRATIVE: CASE EVENT DATE: 2015
